FAERS Safety Report 15084809 (Version 2)
Quarter: 2018Q3

REPORT INFORMATION
  Report Type: Report from Study
  Country: TW (occurrence: TW)
  Receive Date: 20180628
  Receipt Date: 20180702
  Transmission Date: 20181010
  Serious: Yes (Life-Threatening, Hospitalization, Other)
  Sender: FDA-Public Use
  Company Number: TW-ACTELION-A-US2018-174563

PATIENT
  Age: 63 Year
  Sex: Female

DRUGS (2)
  1. VENTAVIS [Suspect]
     Active Substance: ILOPROST
     Indication: PULMONARY HYPERTENSION
     Dosage: UNK UNK, QID
     Route: 055
     Dates: end: 20180529
  2. ADEMPAS [Suspect]
     Active Substance: RIOCIGUAT
     Indication: PULMONARY HYPERTENSION
     Dosage: UNK, TID
     Route: 065

REACTIONS (16)
  - Dyspnoea [Unknown]
  - Weight decreased [Recovered/Resolved]
  - Kidney enlargement [Unknown]
  - Memory impairment [Recovered/Resolved]
  - Gastrointestinal haemorrhage [Unknown]
  - Swelling [Recovered/Resolved]
  - Confusional state [Recovered/Resolved]
  - Discomfort [Unknown]
  - Cerebrovascular accident [Recovered/Resolved]
  - Peptic ulcer [Recovered/Resolved]
  - Peripheral swelling [Unknown]
  - Haemoglobin decreased [Recovered/Resolved]
  - Blood albumin decreased [Recovered/Resolved]
  - Splenomegaly [Unknown]
  - Somnolence [Recovered/Resolved]
  - Ammonia increased [Recovered/Resolved]

NARRATIVE: CASE EVENT DATE: 20180530
